FAERS Safety Report 24773075 (Version 1)
Quarter: 2024Q4

REPORT INFORMATION
  Report Type: Spontaneous
  Country: AE (occurrence: None)
  Receive Date: 20241225
  Receipt Date: 20241225
  Transmission Date: 20250115
  Serious: Yes (Other)
  Sender: ENCUBE ETHICALS
  Company Number: AE-Encube-001522

PATIENT
  Age: 33 Year
  Sex: Female

DRUGS (3)
  1. DAPSONE [Suspect]
     Active Substance: DAPSONE
     Indication: Systemic lupus erythematosus
  2. HYDROXYCHLOROQUINE [Concomitant]
     Active Substance: HYDROXYCHLOROQUINE
     Indication: Systemic lupus erythematosus
  3. PREDNISOLONE [Concomitant]
     Active Substance: PREDNISOLONE
     Indication: Systemic lupus erythematosus
     Dosage: 60 M

REACTIONS (2)
  - Stevens-Johnson syndrome [Recovered/Resolved]
  - Off label use [Unknown]
